FAERS Safety Report 8774199 (Version 2)
Quarter: 2012Q4

REPORT INFORMATION
  Report Type: 
  Country: JP (occurrence: JP)
  Receive Date: 20120907
  Receipt Date: 20121013
  Transmission Date: 20130627
  Serious: No
  Sender: FDA-Public Use
  Company Number: JP-AMGEN-JPNSP2012050198

PATIENT
  Age: 90 Year
  Sex: Male
  Weight: 52 kg

DRUGS (14)
  1. ARANESP [Suspect]
     Indication: NEPHROGENIC ANAEMIA
     Dosage: 30 mug, qd
     Route: 058
     Dates: start: 20120502, end: 20120502
  2. ARANESP [Suspect]
     Dosage: 60 mug, q4wk
     Route: 058
     Dates: start: 20120530, end: 20120627
  3. SULBACILLIN [Concomitant]
     Dosage: 6 g, qd
     Route: 040
     Dates: start: 20120517, end: 20120524
  4. MEYLON [Concomitant]
     Indication: METABOLIC ACIDOSIS
     Dosage: 71.2 ml, qd
     Route: 040
     Dates: start: 20120715, end: 20120715
  5. GASTER [Concomitant]
     Indication: GASTRITIS
     Route: 048
     Dates: start: 20090713, end: 20120723
  6. CEFMETAZOLE NA [Concomitant]
     Indication: CELLULITIS
     Route: 040
     Dates: start: 20120718
  7. EPOETIN ALFA(GENETICAL RECOMBINATION) [Concomitant]
     Indication: NEPHROGENIC ANAEMIA
     Route: 040
     Dates: start: 20120723
  8. BAYASPIRIN [Concomitant]
     Indication: MYOCARDIAL INFARCTION
     Route: 048
  9. LIVALO [Concomitant]
     Indication: HYPERLIPIDAEMIA
     Dosage: 1 mg, qd
     Route: 048
     Dates: end: 20120530
  10. LASIX [Concomitant]
     Indication: OEDEMA
     Dosage: 20 mg, qd
     Route: 048
     Dates: end: 20120627
  11. LASIX [Concomitant]
     Dosage: 40 mg, bid
     Route: 048
     Dates: start: 20120627
  12. BASEN OD [Concomitant]
     Indication: DIABETES MELLITUS
     Dosage: 0.3 mg, qd
     Route: 048
     Dates: end: 20120627
  13. NOVORAPID 70 MIX [Concomitant]
     Indication: DIABETES MELLITUS
     Dosage: 18 IU, tid
     Route: 058
     Dates: end: 20120715
  14. NOVORAPID [Concomitant]
     Indication: DIABETES MELLITUS
     Dosage: 18 IU, tid
     Route: 058
     Dates: start: 20120715

REACTIONS (2)
  - Eosinophil count increased [Unknown]
  - Rash [Unknown]
